FAERS Safety Report 5804035-3 (Version None)
Quarter: 2008Q3

REPORT INFORMATION
  Report Type: 
  Country: None (occurrence: None)
  Receive Date: 20080709
  Receipt Date: 20080704
  Transmission Date: 20090109
  Serious: Yes (Other)
  Sender: FDA-Public Use
  Company Number: GB-RANBAXY-2008RR-16246

PATIENT

DRUGS (3)
  1. FLUOXETINE [Suspect]
     Indication: DEPRESSION
     Dosage: 40 MG, UNK
     Route: 048
     Dates: start: 20080201, end: 20080401
  2. VENLAFAXINE 75MG TABLETS [Suspect]
     Indication: DEPRESSION
     Dosage: 75 MG, UNK
     Route: 048
     Dates: start: 20080401
  3. CERAZETTE [Concomitant]
     Indication: CONTRACEPTION
     Dosage: 1 DF, QD
     Route: 048
     Dates: start: 20070101, end: 20070301

REACTIONS (3)
  - BLOOD FOLLICLE STIMULATING HORMONE INCREASED [None]
  - OESTRADIOL DECREASED [None]
  - PREMATURE MENOPAUSE [None]
